FAERS Safety Report 5533556-6 (Version None)
Quarter: 2007Q4

REPORT INFORMATION
  Report Type: 
  Country: None (occurrence: None)
  Receive Date: 20071129
  Receipt Date: 20071116
  Transmission Date: 20080405
  Serious: Yes (Other)
  Sender: FDA-Public Use
  Company Number: PAR_01800_2007

PATIENT
  Age: 52 Year
  Sex: Male

DRUGS (3)
  1. LISINOPRIL [Suspect]
     Indication: OEDEMA
     Dosage: (10 MG QD)
  2. FUROSEMIDE [Suspect]
     Indication: OEDEMA
     Dosage: (20 MG QD)
  3. FUROSEMIDE [Suspect]
     Indication: OEDEMA
     Dosage: (60 MG QD)

REACTIONS (6)
  - BLOOD ALBUMIN DECREASED [None]
  - DRUG INTERACTION [None]
  - DYSPNOEA [None]
  - HAEMODIALYSIS [None]
  - RENAL DISORDER [None]
  - RENAL FAILURE [None]
